FAERS Safety Report 16752733 (Version 3)
Quarter: 2019Q4

REPORT INFORMATION
  Report Type: Spontaneous
  Country: BR (occurrence: BR)
  Receive Date: 20190828
  Receipt Date: 20191127
  Transmission Date: 20200122
  Serious: Yes (Death, Hospitalization, Other)
  Sender: FDA-Public Use
  Company Number: BR-SA-2019SA240132

PATIENT
  Age: 40 Year
  Sex: Female

DRUGS (2)
  1. FABRAZYME [Suspect]
     Active Substance: AGALSIDASE BETA
     Indication: FABRY^S DISEASE
     Dosage: 2 VIALS, Q15D
     Route: 041
  2. MYCOPHENOLATE MOFETIL. [Suspect]
     Active Substance: MYCOPHENOLATE MOFETIL
     Dosage: UNK UNK, UNK
     Route: 065

REACTIONS (6)
  - Death [Fatal]
  - Burning sensation [Unknown]
  - Blister rupture [Unknown]
  - Immunodeficiency [Unknown]
  - Drug ineffective [Unknown]
  - Blister [Unknown]

NARRATIVE: CASE EVENT DATE: 20190720
